FAERS Safety Report 9175413 (Version 1)
Quarter: 2013Q1

REPORT INFORMATION
  Report Type: Spontaneous
  Country: US (occurrence: US)
  Receive Date: 20130320
  Receipt Date: 20130320
  Transmission Date: 20140127
  Serious: No
  Sender: FDA-Public Use
  Company Number: US-ASTRAZENECA-2013SE13837

PATIENT
  Age: 80 Year
  Sex: Male
  Weight: 98.4 kg

DRUGS (13)
  1. TOPROL-XL [Suspect]
     Indication: HYPERTENSION
     Route: 048
     Dates: start: 1982, end: 201210
  2. TOPROL-XL [Suspect]
     Indication: ARRHYTHMIA
     Route: 048
     Dates: start: 1982, end: 201210
  3. TOPROL-XL [Suspect]
     Indication: HYPERTENSION
     Dosage: GENERIC
     Route: 048
  4. TOPROL-XL [Suspect]
     Indication: ARRHYTHMIA
     Dosage: GENERIC
     Route: 048
  5. TOPROL-XL [Suspect]
     Indication: HYPERTENSION
     Route: 048
     Dates: start: 201011, end: 201212
  6. TOPROL-XL [Suspect]
     Indication: ARRHYTHMIA
     Route: 048
     Dates: start: 201011, end: 201212
  7. TOPROL-XL [Suspect]
     Indication: HYPERTENSION
     Route: 048
     Dates: start: 201212, end: 201301
  8. TOPROL-XL [Suspect]
     Indication: ARRHYTHMIA
     Route: 048
     Dates: start: 201212, end: 201301
  9. TOPROL-XL [Suspect]
     Indication: HYPERTENSION
     Route: 048
     Dates: start: 201301
  10. TOPROL-XL [Suspect]
     Indication: ARRHYTHMIA
     Route: 048
     Dates: start: 201301
  11. LISINOPRIL [Suspect]
     Route: 048
     Dates: start: 201301
  12. NORVASC [Suspect]
     Route: 048
     Dates: start: 201212, end: 201301
  13. NORVASC [Suspect]
     Route: 048
     Dates: start: 201301

REACTIONS (4)
  - Blood pressure inadequately controlled [Not Recovered/Not Resolved]
  - Hypertension [Unknown]
  - Heart rate decreased [Unknown]
  - Drug ineffective [Unknown]
